FAERS Safety Report 10608568 (Version 5)
Quarter: 2015Q3

REPORT INFORMATION
  Report Type: Report from Study
  Country: US (occurrence: US)
  Receive Date: 20141125
  Receipt Date: 20150814
  Transmission Date: 20151125
  Serious: Yes (Hospitalization)
  Sender: FDA-Public Use
  Company Number: US-ACTELION-A-US2014-108615

PATIENT
  Age: 51 Year
  Sex: Female

DRUGS (6)
  1. SILDENAFIL. [Concomitant]
     Active Substance: SILDENAFIL
  2. REMODULIN [Concomitant]
     Active Substance: TREPROSTINIL
  3. TYVASO [Concomitant]
     Active Substance: TREPROSTINIL
  4. TRACLEER [Suspect]
     Active Substance: BOSENTAN
     Indication: PULMONARY ARTERIAL HYPERTENSION
     Dosage: UNK
     Route: 048
  5. COUMADIN [Concomitant]
     Active Substance: WARFARIN SODIUM
  6. LOVENOX [Concomitant]
     Active Substance: ENOXAPARIN SODIUM

REACTIONS (8)
  - Device malfunction [Not Recovered/Not Resolved]
  - Vomiting [Not Recovered/Not Resolved]
  - Cyst rupture [Unknown]
  - Device dislocation [Unknown]
  - Malaise [Unknown]
  - Uterine cyst [Unknown]
  - Device damage [Unknown]
  - Device related sepsis [Unknown]

NARRATIVE: CASE EVENT DATE: 20150601
